FAERS Safety Report 21021831 (Version 1)
Quarter: 2022Q2

REPORT INFORMATION
  Report Type: Spontaneous
  Country: US (occurrence: US)
  Receive Date: 20220629
  Receipt Date: 20220629
  Transmission Date: 20220720
  Serious: No
  Sender: FDA-Public Use
  Company Number: US-BAUSCH-BL-2022-016123

PATIENT
  Sex: Male

DRUGS (1)
  1. FLUNISOLIDE [Suspect]
     Active Substance: FLUNISOLIDE
     Indication: Product used for unknown indication
     Route: 045

REACTIONS (2)
  - Abnormal sensation in eye [Unknown]
  - Accidental exposure to product [Unknown]

NARRATIVE: CASE EVENT DATE: 20220621
